FAERS Safety Report 19417840 (Version 6)
Quarter: 2021Q3

REPORT INFORMATION
  Report Type: Report from Study
  Country: GB (occurrence: GB)
  Receive Date: 20210615
  Receipt Date: 20210809
  Transmission Date: 20211014
  Serious: Yes (Death)
  Sender: FDA-Public Use
  Company Number: GB-EISAI MEDICAL RESEARCH-EC-2021-094482

PATIENT
  Age: 68 Year
  Sex: Female
  Weight: 57.4 kg

DRUGS (19)
  1. PEMBROLIZUMAB. [Suspect]
     Active Substance: PEMBROLIZUMAB
     Indication: NON-SMALL CELL LUNG CANCER METASTATIC
     Route: 041
     Dates: start: 20201106, end: 20210222
  2. FLECAINIDE [Concomitant]
     Active Substance: FLECAINIDE
     Dates: start: 199901
  3. PARACETAMOL [Concomitant]
     Active Substance: ACETAMINOPHEN
     Dates: start: 20201020
  4. ZOMORPH [Concomitant]
     Active Substance: MORPHINE SULFATE
     Dates: start: 20201125
  5. LENVATINIB [Suspect]
     Active Substance: LENVATINIB
     Route: 048
     Dates: start: 20210518, end: 20210604
  6. BISOPROLOL [Concomitant]
     Active Substance: BISOPROLOL
     Dates: start: 199901
  7. LEVOTHYROXINE SODIUM. [Concomitant]
     Active Substance: LEVOTHYROXINE SODIUM
     Dates: start: 201701
  8. BISACODYL. [Concomitant]
     Active Substance: BISACODYL
     Dates: start: 20201021
  9. BUSPIRONE HYDROCHLORIDE. [Concomitant]
     Active Substance: BUSPIRONE HYDROCHLORIDE
     Dates: start: 20210309
  10. LENVATINIB [Suspect]
     Active Substance: LENVATINIB
     Indication: NON-SMALL CELL LUNG CANCER METASTATIC
     Dosage: STARTING DOSE 20 MG, QD (FLUCTUATED DOSAGE)
     Route: 048
     Dates: start: 20201106, end: 20210407
  11. SENNA [Concomitant]
     Active Substance: SENNA LEAF\SENNOSIDES\SENNOSIDES A AND B
     Dates: start: 20210315
  12. CYCLIZINE [Concomitant]
     Active Substance: CYCLIZINE
     Dates: start: 20210129
  13. PEMBROLIZUMAB. [Suspect]
     Active Substance: PEMBROLIZUMAB
     Route: 041
     Dates: start: 20210322, end: 20210322
  14. ATORVASTATIN [Concomitant]
     Active Substance: ATORVASTATIN
     Dates: start: 200501
  15. OMEPRAZOLE. [Concomitant]
     Active Substance: OMEPRAZOLE
     Dates: start: 201801
  16. SITAGLIPTIN [Concomitant]
     Active Substance: SITAGLIPTIN
     Dates: start: 20200715
  17. ORAMORPH SR SUSTAINED RELEASE [Concomitant]
     Active Substance: MORPHINE SULFATE
     Dates: start: 20201112
  18. APIXABAN [Concomitant]
     Active Substance: APIXABAN
     Dates: start: 20210219
  19. MACROGOL [Concomitant]
     Active Substance: POLYETHYLENE GLYCOLS
     Dates: start: 20201021

REACTIONS (1)
  - Malignant neoplasm progression [Fatal]

NARRATIVE: CASE EVENT DATE: 20210601
